FAERS Safety Report 10911873 (Version 1)
Quarter: 2015Q1

REPORT INFORMATION
  Report Type: Spontaneous
  Country: US (occurrence: None)
  Receive Date: 20150309
  Receipt Date: 20150309
  Transmission Date: 20150721
  Serious: No
  Sender: FDA-Public Use
  Company Number: None

PATIENT
  Age: 58 Year
  Sex: Male

DRUGS (8)
  1. FLECAINIDE [Concomitant]
     Active Substance: FLECAINIDE
  2. ANDROGEL PUMP GEL [Concomitant]
  3. ANDRODERM [Concomitant]
     Active Substance: TESTOSTERONE
  4. AMPYRA [Suspect]
     Active Substance: DALFAMPRIDINE
     Indication: MULTIPLE SCLEROSIS
     Route: 048
     Dates: start: 201406, end: 201408
  5. CYANOCOBALAMIN INJ [Concomitant]
  6. WARFARIN [Concomitant]
     Active Substance: WARFARIN
  7. OMEPRAZOLE. [Concomitant]
     Active Substance: OMEPRAZOLE
  8. NITROFURANTOIN. [Concomitant]
     Active Substance: NITROFURANTOIN

REACTIONS (2)
  - Abasia [None]
  - Drug ineffective [None]

NARRATIVE: CASE EVENT DATE: 20140814
